FAERS Safety Report 12944832 (Version 1)
Quarter: 2016Q4

REPORT INFORMATION
  Report Type: Spontaneous
  Country: US (occurrence: US)
  Receive Date: 20161115
  Receipt Date: 20161115
  Transmission Date: 20170207
  Serious: Yes (Hospitalization, Disabling)
  Sender: FDA-Public Use
  Company Number: None

PATIENT
  Age: 30 Year
  Sex: Male
  Weight: 83.2 kg

DRUGS (3)
  1. CHINESE HERBS [Concomitant]
     Active Substance: HERBALS
  2. CIPROFLOXACIN. [Suspect]
     Active Substance: CIPROFLOXACIN
     Indication: EPIDIDYMITIS
     Dosage: ?          QUANTITY:1 TABLET(S);?
     Route: 048
     Dates: start: 20090504, end: 20090506
  3. GLUTAMINE [Concomitant]
     Active Substance: GLUTAMINE

REACTIONS (26)
  - Feeling abnormal [None]
  - Constipation [None]
  - Muscular weakness [None]
  - Insomnia [None]
  - Dry skin [None]
  - Rash [None]
  - Cognitive disorder [None]
  - Tongue disorder [None]
  - Toxicity to various agents [None]
  - Fatigue [None]
  - Malaise [None]
  - Diarrhoea [None]
  - Vomiting [None]
  - Flatulence [None]
  - Muscle twitching [None]
  - Dry mouth [None]
  - Memory impairment [None]
  - Sinus disorder [None]
  - Neuropathy peripheral [None]
  - Eructation [None]
  - Disturbance in attention [None]
  - Food intolerance [None]
  - Dizziness [None]
  - Swollen tongue [None]
  - Alcohol use [None]
  - Anxiety [None]

NARRATIVE: CASE EVENT DATE: 20090504
